FAERS Safety Report 5727855-2 (Version None)
Quarter: 2008Q2

REPORT INFORMATION
  Report Type: 
  Country: None (occurrence: None)
  Receive Date: 20080505
  Receipt Date: 20080423
  Transmission Date: 20081010
  Serious: Yes (Death, Hospitalization)
  Sender: FDA-Public Use
  Company Number: GB-PFIZER INC-2007022661

PATIENT
  Age: 6 Year
  Sex: Female

DRUGS (6)
  1. EPIRUBICIN HYDROCHLORIDE [Suspect]
     Indication: RHABDOMYOSARCOMA
  2. CARBOPLATIN [Suspect]
     Indication: RHABDOMYOSARCOMA
  3. DACTINOMYCIN [Suspect]
     Indication: RHABDOMYOSARCOMA
  4. ETOPOSIDE [Suspect]
     Indication: RHABDOMYOSARCOMA
  5. IFOSFAMIDE [Suspect]
     Indication: RHABDOMYOSARCOMA
  6. VINCRISTINE [Suspect]
     Indication: RHABDOMYOSARCOMA

REACTIONS (4)
  - BLOOD CULTURE POSITIVE [None]
  - FEBRILE NEUTROPENIA [None]
  - MUCOSAL INFLAMMATION [None]
  - PNEUMONITIS [None]
